FAERS Safety Report 7801726-X (Version None)
Quarter: 2011Q4

REPORT INFORMATION
  Report Type: 
  Country: None (occurrence: None)
  Receive Date: 20111005
  Receipt Date: 20110913
  Transmission Date: 20120403
  Serious: Yes (Hospitalization)
  Sender: FDA-Public Use
  Company Number: 2011PROUSA00606

PATIENT
  Age: 71 Year
  Sex: Male
  Weight: 79.4 kg

DRUGS (5)
  1. CENTRUM SILVER /01292501/ (ASCORBIC ACID, CALCIUM, MINERALS NOS, RETIN [Concomitant]
  2. COUMADIN [Concomitant]
  3. ZOFRAN /00955301/ (ONDANSETRON) [Concomitant]
  4. COLECALCIFEROL (COLECALCIFEROL) [Concomitant]
  5. PROVENGE [Suspect]
     Indication: PROSTATE CANCER METASTATIC
     Dosage: 250ML, SINGLE, INTRAVENOUS
     Route: 042
     Dates: start: 20110818, end: 20110818

REACTIONS (5)
  - FALL [None]
  - INTERNATIONAL NORMALISED RATIO INCREASED [None]
  - HYPONATRAEMIA [None]
  - THROMBOCYTOPENIA [None]
  - SUBDURAL HAEMATOMA [None]
